FAERS Safety Report 4701113-7 (Version None)
Quarter: 2005Q2

REPORT INFORMATION
  Report Type: 
  Country: None (occurrence: None)
  Receive Date: 20050624
  Receipt Date: 20050610
  Transmission Date: 20051028
  Serious: Yes (Hospitalization)
  Sender: FDA-Public Use
  Company Number: 2005-0008406

PATIENT
  Age: 55 Year
  Sex: Male

DRUGS (4)
  1. VIREAD [Suspect]
     Indication: HIV INFECTION
     Dosage: 300 MG, 1 IN 1 D, ORAL
     Route: 048
     Dates: start: 20050503
  2. EPIVIR [Suspect]
     Indication: HIV INFECTION
     Dosage: 150 MG, 2 IN 1 D, ORAL
     Route: 048
     Dates: start: 20010101
  3. SUSTIVA [Suspect]
     Dosage: 600 MG, 1 IN 1 D, ORAL
     Route: 048
     Dates: start: 20010101
  4. TAVANIC (LEVOFLOXACIN) [Suspect]
     Dates: start: 20050425, end: 20050517

REACTIONS (4)
  - ARTHRITIS [None]
  - OEDEMA [None]
  - OEDEMA PERIPHERAL [None]
  - VASCULAR PURPURA [None]
